FAERS Safety Report 24305517 (Version 1)
Quarter: 2024Q3

REPORT INFORMATION
  Report Type: Spontaneous
  Country: US (occurrence: US)
  Receive Date: 20240911
  Receipt Date: 20240911
  Transmission Date: 20241017
  Serious: No
  Sender: CELLTRION
  Company Number: US-CELLTRION INC.-2024US015984

PATIENT

DRUGS (4)
  1. ZYMFENTRA [Suspect]
     Active Substance: INFLIXIMAB-DYYB
     Indication: Crohn^s disease
     Dosage: 120MG, ONCE EVERY TWO WEEKS, SUBCUTANEOUSLY
     Route: 058
     Dates: start: 20240607
  2. ZYMFENTRA [Suspect]
     Active Substance: INFLIXIMAB-DYYB
     Dosage: SECOND INJECTION
  3. IMURAN [Concomitant]
     Active Substance: AZATHIOPRINE
     Dosage: 50 MG, DAILY (LOW DOSE)
  4. KARIVA [Concomitant]
     Active Substance: DESOGESTREL\ETHINYL ESTRADIOL
     Indication: Contraception
     Dosage: UNK, DAILY

REACTIONS (2)
  - Injection site bruising [Not Recovered/Not Resolved]
  - Injection site pain [Unknown]

NARRATIVE: CASE EVENT DATE: 20240607
